FAERS Safety Report 10550161 (Version 1)
Quarter: 2014Q4

REPORT INFORMATION
  Report Type: Spontaneous
  Country: GB (occurrence: GB)
  Receive Date: 20141028
  Receipt Date: 20141028
  Transmission Date: 20150529
  Serious: Yes (Other)
  Sender: FDA-Public Use
  Company Number: GB-PFIZER INC-2014294655

PATIENT
  Sex: Male

DRUGS (5)
  1. CITALOPRAM [Suspect]
     Active Substance: CITALOPRAM HYDROBROMIDE
  2. TRAZODONE HYDROCHLORIDE. [Suspect]
     Active Substance: TRAZODONE HYDROCHLORIDE
     Dosage: STRENGTH 50 MG
     Route: 065
  3. SERTRALINE HCL [Suspect]
     Active Substance: SERTRALINE HYDROCHLORIDE
     Dosage: UNK
  4. PROPRANOLOL [Suspect]
     Active Substance: PROPRANOLOL\PROPRANOLOL HYDROCHLORIDE
     Dosage: UNK
  5. TRAZODONE HYDROCHLORIDE. [Suspect]
     Active Substance: TRAZODONE HYDROCHLORIDE
     Dosage: STRENGTH 100 MG
     Route: 065

REACTIONS (12)
  - Somnolence [Unknown]
  - Disorientation [Unknown]
  - Hearing impaired [Unknown]
  - Memory impairment [Unknown]
  - Eye disorder [Unknown]
  - Asperger^s disorder [Unknown]
  - Anxiety [Unknown]
  - Cognitive disorder [Unknown]
  - Depression [Unknown]
  - Drug ineffective [Unknown]
  - Insomnia [Unknown]
  - Malaise [Unknown]
